FAERS Safety Report 14304185 (Version 2)
Quarter: 2018Q2

REPORT INFORMATION
  Report Type: Spontaneous
  Country: FR (occurrence: FR)
  Receive Date: 20171219
  Receipt Date: 20180620
  Transmission Date: 20180711
  Serious: Yes (Death, Other)
  Sender: FDA-Public Use
  Company Number: FR-OTSUKA-DJ201306717

PATIENT
  Age: 19 Year
  Sex: Male

DRUGS (3)
  1. ABILIFY [Suspect]
     Active Substance: ARIPIPRAZOLE
     Indication: SCHIZOPHRENIA
     Dosage: 10 MG, QD
     Route: 048
     Dates: start: 20121116, end: 20121228
  2. ABILIFY [Suspect]
     Active Substance: ARIPIPRAZOLE
     Indication: PSYCHOTIC DISORDER
     Dosage: 20 MG, QD
     Route: 048
     Dates: start: 20121228
  3. ZYPREXA [Concomitant]
     Active Substance: OLANZAPINE
     Indication: SCHIZOPHRENIA
     Dosage: 10 MG, UNK
     Dates: start: 201112, end: 20121207

REACTIONS (11)
  - Vomiting [Recovered/Resolved]
  - Completed suicide [Fatal]
  - Diarrhoea [Recovered/Resolved]
  - Dysarthria [Unknown]
  - Weight decreased [Unknown]
  - Insomnia [Unknown]
  - Gastrointestinal disorder [Unknown]
  - Abdominal pain upper [Unknown]
  - Refusal of treatment by patient [Unknown]
  - Nasopharyngitis [Unknown]
  - Malaise [Unknown]

NARRATIVE: CASE EVENT DATE: 201212
